FAERS Safety Report 16882311 (Version 1)
Quarter: 2019Q4

REPORT INFORMATION
  Report Type: Spontaneous
  Country: US (occurrence: US)
  Receive Date: 20191003
  Receipt Date: 20191003
  Transmission Date: 20200122
  Serious: Yes (Other)
  Sender: FDA-Public Use
  Company Number: None

PATIENT
  Age: 71 Year
  Sex: Male
  Weight: 89.55 kg

DRUGS (1)
  1. VANCOMYCIN [Suspect]
     Active Substance: VANCOMYCIN
     Indication: BACTERIAL INFECTION
     Route: 042
     Dates: start: 20190909, end: 20191001

REACTIONS (3)
  - Neutrophil count decreased [None]
  - White blood cell count decreased [None]
  - Neutropenia [None]

NARRATIVE: CASE EVENT DATE: 20191001
